FAERS Safety Report 25551309 (Version 1)
Quarter: 2025Q3

REPORT INFORMATION
  Report Type: Spontaneous
  Country: US (occurrence: US)
  Receive Date: 20250714
  Receipt Date: 20250714
  Transmission Date: 20251021
  Serious: No
  Sender: MYLAN
  Company Number: US-MYLANLABS-2025M1056259

PATIENT
  Age: 69 Year
  Sex: Female
  Weight: 47.17 kg

DRUGS (4)
  1. ALPRAZOLAM [Suspect]
     Active Substance: ALPRAZOLAM
     Indication: Anxiety
  2. ALPRAZOLAM [Suspect]
     Active Substance: ALPRAZOLAM
     Route: 065
  3. ALPRAZOLAM [Suspect]
     Active Substance: ALPRAZOLAM
     Route: 065
  4. ALPRAZOLAM [Suspect]
     Active Substance: ALPRAZOLAM

REACTIONS (2)
  - Hypoaesthesia oral [Recovering/Resolving]
  - Off label use [Unknown]

NARRATIVE: CASE EVENT DATE: 20250630
